FAERS Safety Report 4552993-X (Version None)
Quarter: 2005Q1

REPORT INFORMATION
  Report Type: 
  Country: None (occurrence: None)
  Receive Date: 20050113
  Receipt Date: 20050105
  Transmission Date: 20050727
  Serious: Yes (Hospitalization)
  Sender: FDA-Public Use
  Company Number: 2005004736

PATIENT
  Age: 68 Year
  Sex: Male
  Weight: 80 kg

DRUGS (10)
  1. TAHOR (ATORVASTATIN) [Suspect]
     Indication: LIPID METABOLISM DISORDER
     Dosage: 10 MG (1 IN 1 D), ORAL
     Route: 048
     Dates: start: 20040316, end: 20040717
  2. VALSARTAN (VALSARTAN) [Suspect]
     Indication: ESSENTIAL HYPERTENSION
     Dosage: 80 MG, (1 IN 1 D), ORAL
     Route: 048
     Dates: start: 20040316, end: 20040512
  3. ISOCONAZOLE NITRATE (ISOCONAZOLE NITRATE) [Suspect]
     Indication: GASTROINTESTINAL DISORDER
     Dosage: 2 DOSE FORM (2 IN 1 D), TOPICAL
     Route: 061
     Dates: start: 20040316, end: 20040522
  4. DESONIDE [Suspect]
     Indication: GASTROINTESTINAL DISORDER
     Dosage: 2 DOSE FORM (2 IN 1 D), TOPICAL
     Route: 061
     Dates: start: 20040316, end: 20040512
  5. TETRAZEPAM (TETRAZEPAM) [Suspect]
     Indication: SCIATICA
     Dosage: 50 MG (50 MG, 1 IN 1 D), ORAL
     Route: 048
     Dates: start: 20040421, end: 20040510
  6. DICLOFENAC (DICLOFENAC) [Suspect]
     Indication: SCIATICA
     Dosage: 100 MG (50 MG, 2 IN 1 D), ORAL
     Route: 048
     Dates: start: 20040316, end: 20040521
  7. KETOCONAZOLE [Concomitant]
  8. NITRENDIPINE (NITRENDIPINE) [Concomitant]
  9. LANSOPRAZOLE [Concomitant]
  10. DIOVAN HCT [Concomitant]

REACTIONS (5)
  - ANORECTAL DISORDER [None]
  - CONJUNCTIVITIS [None]
  - GENITAL EROSION [None]
  - ORAL SOFT TISSUE DISORDER [None]
  - PEMPHIGUS [None]
